FAERS Safety Report 17964973 (Version 1)
Quarter: 2020Q2

REPORT INFORMATION
  Report Type: Spontaneous
  Country: US (occurrence: US)
  Receive Date: 20200630
  Receipt Date: 20200630
  Transmission Date: 20200714
  Serious: Yes (Other)
  Sender: FDA-Public Use
  Company Number: US-ASTRAZENECA-2020SE82868

PATIENT
  Sex: Female

DRUGS (2)
  1. MOVANTIK [Suspect]
     Active Substance: NALOXEGOL OXALATE
     Dosage: 12.5MG CUT IN HALF UNKNOWN
     Route: 048
  2. MOVANTIK [Suspect]
     Active Substance: NALOXEGOL OXALATE
     Dosage: 12.5MG UNKNOWN
     Route: 048

REACTIONS (10)
  - Hypersensitivity [Recovered/Resolved]
  - Intentional dose omission [Not Recovered/Not Resolved]
  - Intentional product misuse [Not Recovered/Not Resolved]
  - Muscle spasms [Recovered/Resolved]
  - Ill-defined disorder [Recovered/Resolved]
  - Physical disability [Recovered/Resolved]
  - Condition aggravated [Recovered/Resolved]
  - Blindness unilateral [Recovered/Resolved]
  - Dyslexia [Recovered/Resolved]
  - Immune system disorder [Recovered/Resolved]
